FAERS Safety Report 13121953 (Version 1)
Quarter: 2017Q1

REPORT INFORMATION
  Report Type: Report from Study
  Country: US (occurrence: US)
  Receive Date: 20170117
  Receipt Date: 20170117
  Transmission Date: 20170428
  Serious: No
  Sender: FDA-Public Use
  Company Number: PHEH2017US001301

PATIENT
  Age: 54 Year
  Sex: Male

DRUGS (9)
  1. VITAMIN D3 [Concomitant]
     Active Substance: CHOLECALCIFEROL
     Indication: PRODUCT USED FOR UNKNOWN INDICATION
     Dosage: 1000 U, QD
     Route: 048
  2. NIASPAN [Suspect]
     Active Substance: NIACIN
     Indication: FAMILIAL HYPERTRIGLYCERIDAEMIA
     Dosage: 1000 MG, QD
     Route: 048
     Dates: start: 20160829, end: 201611
  3. ZETIA [Suspect]
     Active Substance: EZETIMIBE
     Indication: FAMILIAL HYPERTRIGLYCERIDAEMIA
     Dosage: 10 MG, QD
     Route: 048
     Dates: start: 20160916, end: 201611
  4. ALLOPURINOL. [Concomitant]
     Active Substance: ALLOPURINOL
     Indication: GOUT
     Dosage: 300 MG, QD
     Route: 048
     Dates: start: 2016
  5. COSENTYX [Suspect]
     Active Substance: SECUKINUMAB
     Indication: PSORIASIS
     Dosage: 300 MG, QMO
     Route: 058
     Dates: start: 20160512
  6. LOFIBRA [Suspect]
     Active Substance: FENOFIBRATE
     Indication: FAMILIAL HYPERTRIGLYCERIDAEMIA
     Dosage: 200 MG, QD
     Route: 048
     Dates: start: 20160829, end: 201611
  7. MULTI VIT [Concomitant]
     Indication: PRODUCT USED FOR UNKNOWN INDICATION
     Dosage: UNK, PILL
     Route: 048
  8. LOVAZA [Concomitant]
     Active Substance: OMEGA-3-ACID ETHYL ESTERS
     Indication: FAMILIAL HYPERTRIGLYCERIDAEMIA
     Dosage: 2 G, BID
     Route: 048
     Dates: start: 20160815
  9. ASA [Concomitant]
     Active Substance: ASPIRIN
     Indication: PRODUCT USED FOR UNKNOWN INDICATION
     Dosage: 325 MG, QD
     Route: 048

REACTIONS (1)
  - Blood creatine phosphokinase increased [Recovered/Resolved]

NARRATIVE: CASE EVENT DATE: 20161103
